FAERS Safety Report 20651087 (Version 2)
Quarter: 2022Q2

REPORT INFORMATION
  Report Type: Spontaneous
  Country: US (occurrence: US)
  Receive Date: 20220329
  Receipt Date: 20220529
  Transmission Date: 20220720
  Serious: Yes (Other)
  Sender: FDA-Public Use
  Company Number: US-SA-SAC20220328000545

PATIENT
  Age: 60 Year
  Sex: Male

DRUGS (1)
  1. ZANTAC [Suspect]
     Active Substance: RANITIDINE HYDROCHLORIDE
     Indication: Dyspepsia
     Dosage: UNK, QW
     Dates: start: 200001, end: 201512

REACTIONS (1)
  - Prostate cancer stage I [Not Recovered/Not Resolved]

NARRATIVE: CASE EVENT DATE: 20180801
